FAERS Safety Report 5822505-9 (Version None)
Quarter: 2008Q3

REPORT INFORMATION
  Report Type: 
  Country: None (occurrence: None)
  Receive Date: 20080725
  Receipt Date: 20071227
  Transmission Date: 20090109
  Serious: No
  Sender: FDA-Public Use
  Company Number: US-AMGEN-KDL258665

PATIENT
  Sex: Female

DRUGS (10)
  1. PROCRIT [Suspect]
     Indication: DRUG USE FOR UNKNOWN INDICATION
     Dates: start: 20060901
  2. CHOLESTYRAMINE [Concomitant]
  3. PHISOHEX [Concomitant]
  4. GUAIFENESIN + PSEUDOEPHEDRINE [Concomitant]
  5. LOTEPREDNOL ETABONATE [Concomitant]
  6. CALCITONIN SALMON [Concomitant]
     Dates: end: 20070101
  7. ASPIRIN [Concomitant]
     Route: 048
  8. FISH OIL [Concomitant]
     Route: 048
  9. COENZYME Q10 [Concomitant]
  10. MULTI-VITAMINS [Concomitant]
     Route: 048

REACTIONS (6)
  - HEADACHE [None]
  - HORMONE LEVEL ABNORMAL [None]
  - INJECTION SITE PAIN [None]
  - LABORATORY TEST ABNORMAL [None]
  - NAUSEA [None]
  - VASOACTIVE INTESTINAL POLYPEPTIDE TEST [None]
